FAERS Safety Report 6988457-3 (Version None)
Quarter: 2010Q3

REPORT INFORMATION
  Report Type: 
  Country: None (occurrence: None)
  Receive Date: 20100914
  Receipt Date: 20100830
  Transmission Date: 20110219
  Serious: Yes (Other)
  Sender: FDA-Public Use
  Company Number: APP201000739

PATIENT
  Sex: Male

DRUGS (2)
  1. AMPICILLIN [Suspect]
     Indication: ANTIBIOTIC PROPHYLAXIS
     Dosage: 2 GM, 1 IN 6 HR, TRANSPLACENTAL
     Route: 064
  2. PENICILLIN G [Concomitant]

REACTIONS (6)
  - CAESAREAN SECTION [None]
  - CONGENITAL SYPHILIS [None]
  - FOETAL HEART RATE INCREASED [None]
  - JARISCH-HERXHEIMER REACTION [None]
  - MATERNAL DRUGS AFFECTING FOETUS [None]
  - THROMBOCYTOPENIA [None]
